FAERS Safety Report 7201678-X (Version None)
Quarter: 2010Q4

REPORT INFORMATION
  Report Type: 
  Country: None (occurrence: None)
  Receive Date: 20101229
  Receipt Date: 20101221
  Transmission Date: 20110411
  Serious: Yes (Hospitalization, Other)
  Sender: FDA-Public Use
  Company Number: US-PFIZER INC-2010177461

PATIENT
  Sex: Male
  Weight: 125.99 kg

DRUGS (13)
  1. REVATIO [Suspect]
     Dosage: UNK
     Route: 048
     Dates: start: 20100610, end: 20100720
  2. TRACLEER [Suspect]
     Indication: PULMONARY ARTERIAL HYPERTENSION
     Dosage: 125 MG, 2X/DAY
     Route: 048
     Dates: start: 20100301
  3. WARFARIN [Concomitant]
     Dosage: UNK
  4. OXYGEN [Concomitant]
     Dosage: UNK
  5. ALBUTEROL [Concomitant]
     Dosage: UNK
  6. ADVAIR [Concomitant]
     Dosage: UNK
  7. THEO-DUR [Concomitant]
     Dosage: UNK
  8. ZOCOR [Concomitant]
     Dosage: UNK
  9. BUMEX [Concomitant]
     Dosage: UNK
  10. PRILOSEC [Concomitant]
     Dosage: UNK
  11. K-DUR [Concomitant]
     Dosage: UNK
  12. ALLOPURINOL [Concomitant]
     Dosage: UNK
  13. SPIRIVA [Concomitant]
     Dosage: UNK

REACTIONS (4)
  - ABDOMINAL PAIN UPPER [None]
  - DIZZINESS [None]
  - DYSPNOEA [None]
  - OEDEMA PERIPHERAL [None]
